FAERS Safety Report 4430296-1 (Version None)
Quarter: 2004Q3

REPORT INFORMATION
  Report Type: 
  Country: None (occurrence: None)
  Receive Date: 20040817
  Receipt Date: 20040804
  Transmission Date: 20050211
  Serious: Yes (Hospitalization)
  Sender: FDA-Public Use
  Company Number: 2004052468

PATIENT
  Sex: Male

DRUGS (4)
  1. LOPID [Suspect]
     Indication: ILL-DEFINED DISORDER
     Dosage: 1200 MG (600 MG, 2 IN 1 D), ORAL
     Route: 048
     Dates: start: 19960101, end: 20030213
  2. SIMVASTATIN [Suspect]
     Indication: ILL-DEFINED DISORDER
     Dosage: 20 MG (1 IN 1 D), ORAL
     Route: 048
     Dates: start: 19960101, end: 20030212
  3. FELODIPINE [Concomitant]
  4. OMEPRAZOLE [Concomitant]

REACTIONS (11)
  - ARTHRALGIA [None]
  - ASTHENIA [None]
  - BLOOD CREATINE PHOSPHOKINASE INCREASED [None]
  - BLOOD GLUCOSE INCREASED [None]
  - CARPAL TUNNEL SYNDROME [None]
  - MUSCLE ATROPHY [None]
  - MYALGIA [None]
  - MYOGLOBIN BLOOD INCREASED [None]
  - PAIN IN EXTREMITY [None]
  - POLYNEUROPATHY [None]
  - SPINAL DISORDER [None]
